FAERS Safety Report 24575723 (Version 1)
Quarter: 2024Q4

REPORT INFORMATION
  Report Type: Spontaneous
  Country: US (occurrence: None)
  Receive Date: 20241101
  Receipt Date: 20241101
  Transmission Date: 20250115
  Serious: Yes (Death)
  Sender: Public
  Company Number: None

PATIENT
  Sex: Male

DRUGS (2)
  1. PULMOZYME [Suspect]
     Active Substance: DORNASE ALFA
     Indication: Chronic respiratory failure
     Dosage: FREQUENCY : TWICE A DAY;?
     Route: 055
     Dates: start: 202009
  2. EPIDI0LEX [Concomitant]

REACTIONS (1)
  - Death [None]
